FAERS Safety Report 5244284-9 (Version None)
Quarter: 2007Q1

REPORT INFORMATION
  Report Type: 
  Country: None (occurrence: None)
  Receive Date: 20070222
  Receipt Date: 20070213
  Transmission Date: 20070707
  Serious: Yes (Hospitalization)
  Sender: FDA-Public Use
  Company Number: FR-MERCK-0702USA03634

PATIENT
  Age: 85 Year
  Sex: Male

DRUGS (4)
  1. MINTEZOL [Suspect]
     Indication: PARASITIC INFECTION PROPHYLAXIS
     Route: 065
     Dates: start: 20030301
  2. MINTEZOL [Suspect]
     Route: 065
     Dates: start: 20030601
  3. PREDNISONE TAB [Suspect]
     Indication: TEMPORAL ARTERITIS
     Route: 065
     Dates: start: 20030301
  4. PREDNISONE TAB [Suspect]
     Route: 065
     Dates: start: 20030601

REACTIONS (3)
  - DRUG INEFFECTIVE [None]
  - INFLAMMATION [None]
  - STRONGYLOIDIASIS [None]
